FAERS Safety Report 6856421-0 (Version None)
Quarter: 2010Q3

REPORT INFORMATION
  Report Type: 
  Country: None (occurrence: None)
  Receive Date: 20100716
  Receipt Date: 20100716
  Transmission Date: 20110219
  Serious: Yes (Hospitalization)
  Sender: FDA-Public Use
  Company Number: None

PATIENT
  Age: 70 Year
  Sex: Female

DRUGS (2)
  1. CLINDAMYCIN 600 MG, 375 MG [Suspect]
     Indication: URINARY TRACT INFECTION
     Dosage: 600 MG EVERY 8 HOURS IV, 375 MG EVERY 6 HOURS PO
     Route: 042
     Dates: start: 20100514, end: 20100515
  2. CLINDAMYCIN 600 MG, 375 MG [Suspect]
     Indication: URINARY TRACT INFECTION
     Dosage: 600 MG EVERY 8 HOURS IV, 375 MG EVERY 6 HOURS PO
     Route: 042
     Dates: start: 20100515, end: 20100517

REACTIONS (2)
  - NO THERAPEUTIC RESPONSE [None]
  - RASH GENERALISED [None]
